FAERS Safety Report 17671268 (Version 2)
Quarter: 2020Q4

REPORT INFORMATION
  Report Type: Report from Study
  Country: GB (occurrence: GB)
  Receive Date: 20200415
  Receipt Date: 20201215
  Transmission Date: 20210113
  Serious: Yes (Other)
  Sender: FDA-Public Use
  Company Number: GB-MYLANLABS-2020M1037882

PATIENT
  Age: 69 Year
  Sex: Female

DRUGS (17)
  1. DOCETAXEL. [Suspect]
     Active Substance: DOCETAXEL
     Indication: BREAST CANCER METASTATIC
     Dosage: NUMBER OF CYCLES: 6
     Route: 042
     Dates: start: 20160125, end: 20160401
  2. DOCETAXEL. [Suspect]
     Active Substance: DOCETAXEL
     Dosage: NUMBER OF CYCLES: 6
     Route: 042
     Dates: start: 20151231, end: 20151231
  3. TRASTUZUMAB. [Suspect]
     Active Substance: TRASTUZUMAB
     Indication: BREAST CANCER METASTATIC
     Dosage: MAINTANANCE DOSE
     Route: 042
     Dates: start: 20191128, end: 20191219
  4. TRASTUZUMAB. [Suspect]
     Active Substance: TRASTUZUMAB
     Dosage: MAINTANANCE DOSE
     Route: 042
     Dates: start: 20191128, end: 20191219
  5. TRASTUZUMAB. [Suspect]
     Active Substance: TRASTUZUMAB
     Dosage: 394 MILLIGRAM, Q3W (MAINTANANCE DOSE))
     Route: 042
     Dates: start: 20160125, end: 20190426
  6. ANASTROZOLE. [Suspect]
     Active Substance: ANASTROZOLE
     Indication: BREAST CANCER METASTATIC
     Dosage: 1 MILLIGRAM, QD
     Route: 048
     Dates: start: 20151123, end: 20151231
  7. PERTUZUMAB. [Suspect]
     Active Substance: PERTUZUMAB
     Indication: BREAST CANCER METASTATIC
     Dosage: LOADING DOSE
     Route: 042
     Dates: start: 20151230, end: 20151230
  8. PERTUZUMAB. [Suspect]
     Active Substance: PERTUZUMAB
     Dosage: MAINTANANCE DOSE
     Route: 042
     Dates: start: 20160125, end: 20160426
  9. ESTRIOL [Concomitant]
     Active Substance: ESTRIOL
     Dosage: CREAM
     Route: 061
     Dates: start: 20160804
  10. TRASTUZUMAB. [Suspect]
     Active Substance: TRASTUZUMAB
     Dosage: LOADING DOSE
     Route: 042
     Dates: start: 20151230, end: 20151230
  11. TRASTUZUMAB. [Suspect]
     Active Substance: TRASTUZUMAB
     Dosage: 378 MILLIGRAM, Q3W
     Route: 042
     Dates: start: 20191219
  12. TRASTUZUMAB. [Suspect]
     Active Substance: TRASTUZUMAB
     Dosage: 504 MILLIGRAM, Q3W
     Route: 042
     Dates: start: 20191219
  13. RAMIPRIL. [Concomitant]
     Active Substance: RAMIPRIL
     Indication: EJECTION FRACTION DECREASED
     Dosage: 5 MILLIGRAM, QD
     Route: 048
     Dates: start: 201907
  14. DOCETAXEL. [Suspect]
     Active Substance: DOCETAXEL
     Dosage: NUMBER OF CYCLES: 6
     Route: 042
     Dates: start: 20160425, end: 20160425
  15. ANASTROZOLE. [Suspect]
     Active Substance: ANASTROZOLE
     Dosage: 1 MILLIGRAM, QD
     Route: 048
     Dates: start: 20160525
  16. LORATADINE. [Concomitant]
     Active Substance: LORATADINE
     Dosage: 10 MILLIGRAM, QD
     Route: 048
  17. RANITIDINE. [Concomitant]
     Active Substance: RANITIDINE
     Indication: GASTROOESOPHAGEAL REFLUX DISEASE
     Dosage: 150 MILLIGRAM, BID
     Route: 048

REACTIONS (8)
  - Dermatitis [Not Recovered/Not Resolved]
  - Stomatitis [Recovered/Resolved]
  - Alopecia [Recovered/Resolved]
  - Atrial fibrillation [Unknown]
  - Neutropenic sepsis [Recovered/Resolved]
  - Arthralgia [Unknown]
  - Neuropathy peripheral [Not Recovered/Not Resolved]
  - Fatigue [Not Recovered/Not Resolved]

NARRATIVE: CASE EVENT DATE: 201601
